FAERS Safety Report 17667013 (Version 1)
Quarter: 2020Q2

REPORT INFORMATION
  Report Type: Spontaneous
  Country: US (occurrence: US)
  Receive Date: 20200414
  Receipt Date: 20200414
  Transmission Date: 20200713
  Serious: No
  Sender: FDA-Public Use
  Company Number: US-ASTELLAS-2019US031574

PATIENT
  Sex: Female

DRUGS (1)
  1. PROGRAF [Suspect]
     Active Substance: TACROLIMUS
     Indication: RENAL TRANSPLANT
     Dosage: 5 MG, (3 CAPSULES IN THE MORNING AND TWO CAPSULES AT NIGHT)
     Route: 065
     Dates: start: 20021003

REACTIONS (2)
  - Poor quality product administered [Unknown]
  - Product storage error [Unknown]
